FAERS Safety Report 19773015 (Version 1)
Quarter: 2021Q3

REPORT INFORMATION
  Report Type: Report from Study
  Country: US (occurrence: US)
  Receive Date: 20210901
  Receipt Date: 20210901
  Transmission Date: 20211014
  Serious: Yes (Hospitalization)
  Sender: FDA-Public Use
  Company Number: US-CELGENEUS-USA-20210503284

PATIENT
  Age: 73 Year
  Sex: Male
  Weight: 98.7 kg

DRUGS (14)
  1. DEXAMETHASONE. [Suspect]
     Active Substance: DEXAMETHASONE
     Route: 065
     Dates: start: 20180529, end: 20180630
  2. POMALIDOMIDE [Suspect]
     Active Substance: POMALIDOMIDE
     Indication: PLASMA CELL MYELOMA
     Dosage: 4 MILLIGRAM
     Route: 048
     Dates: start: 20201110
  3. POMALIDOMIDE [Suspect]
     Active Substance: POMALIDOMIDE
     Dosage: 4 MILLIGRAM
     Route: 048
     Dates: start: 20201201, end: 20201203
  4. ASPIRIN. [Concomitant]
     Active Substance: ASPIRIN
     Indication: PROPHYLAXIS
     Dosage: 81 MILLIGRAM
     Route: 048
     Dates: start: 201811
  5. RESTORIL [Concomitant]
     Active Substance: TEMAZEPAM
     Indication: SLEEP DISORDER
     Dosage: 15 MILLIGRAM
     Route: 048
     Dates: start: 20190702
  6. DEXAMETHASONE. [Suspect]
     Active Substance: DEXAMETHASONE
     Indication: PLASMA CELL MYELOMA
     Route: 065
     Dates: start: 20180312, end: 20180323
  7. DEXAMETHASONE. [Suspect]
     Active Substance: DEXAMETHASONE
     Route: 065
     Dates: start: 20201201, end: 20201203
  8. NEURONTIN [Concomitant]
     Active Substance: GABAPENTIN
     Indication: NEUROPATHY PERIPHERAL
     Dosage: 1800 MILLIGRAM
     Route: 048
     Dates: start: 20200902
  9. POLYVINYL ALCOHOL [Concomitant]
     Active Substance: POLYVINYL ALCOHOL
     Indication: PRODUCT USED FOR UNKNOWN INDICATION
     Route: 065
     Dates: start: 20201015
  10. ERDAFITINIB. [Suspect]
     Active Substance: ERDAFITINIB
     Indication: PLASMA CELL MYELOMA
     Dosage: 6 MILLIGRAM
     Route: 048
     Dates: start: 20200813
  11. POMALIDOMIDE [Suspect]
     Active Substance: POMALIDOMIDE
     Route: 048
  12. DEXAMETHASONE. [Suspect]
     Active Substance: DEXAMETHASONE
     Route: 065
  13. IXAZOMIB [Suspect]
     Active Substance: IXAZOMIB
     Indication: PLASMA CELL MYELOMA
     Route: 048
     Dates: start: 20200106
  14. DEXAMETHASONE. [Suspect]
     Active Substance: DEXAMETHASONE
     Route: 065
     Dates: start: 20200813

REACTIONS (2)
  - Deep vein thrombosis [Recovered/Resolved]
  - Pulmonary embolism [Recovered/Resolved]

NARRATIVE: CASE EVENT DATE: 20201201
